FAERS Safety Report 8382820-4 (Version None)
Quarter: 2012Q2

REPORT INFORMATION
  Report Type: 
  Country: None (occurrence: None)
  Receive Date: 20120524
  Receipt Date: 20120510
  Transmission Date: 20120825
  Serious: Yes (Hospitalization, Other)
  Sender: FDA-Public Use
  Company Number: DE-JNJFOC-20120410010

PATIENT
  Sex: Male

DRUGS (9)
  1. ZYPREXA [Concomitant]
     Route: 048
     Dates: start: 20120424, end: 20120429
  2. UNKNOWN MEDICATION [Concomitant]
     Route: 065
  3. ZYPREXA [Concomitant]
     Route: 048
     Dates: start: 20120312, end: 20120412
  4. ABILIFY [Concomitant]
     Indication: SCHIZOPHRENIA, PARANOID TYPE
     Route: 048
     Dates: start: 20120312, end: 20120412
  5. PALIPERIDONE [Suspect]
     Route: 030
     Dates: start: 20120328
  6. ZYPREXA [Concomitant]
     Indication: SCHIZOPHRENIA, PARANOID TYPE
     Route: 048
     Dates: start: 20120430
  7. PALIPERIDONE [Suspect]
     Indication: SCHIZOPHRENIA, PARANOID TYPE
     Route: 030
     Dates: start: 20120321
  8. PALIPERIDONE [Suspect]
     Route: 030
  9. ZYPREXA [Concomitant]
     Route: 048
     Dates: start: 20120416, end: 20120423

REACTIONS (2)
  - PELVIC VENOUS THROMBOSIS [None]
  - PRIAPISM [None]
